FAERS Safety Report 13721183 (Version 3)
Quarter: 2019Q3

REPORT INFORMATION
  Report Type: Other
  Country: IT (occurrence: IT)
  Receive Date: 20170706
  Receipt Date: 20190711
  Transmission Date: 20191004
  Serious: Yes (Hospitalization, Other)
  Sender: FDA-Public Use
  Company Number: IT-EMD SERONO-8166573

PATIENT
  Age: 36 Year
  Sex: Male

DRUGS (8)
  1. INSULINE                           /01223401/ [Suspect]
     Active Substance: INSULIN NOS
     Indication: MUSCLE BUILDING THERAPY
     Route: 058
  2. SOMATROPIN. [Suspect]
     Active Substance: SOMATROPIN
     Indication: MUSCLE BUILDING THERAPY
     Route: 030
  3. VITAMIN A                          /00056001/ [Suspect]
     Active Substance: RETINOL
     Indication: MUSCLE BUILDING THERAPY
     Dosage: HIGH DOSAGE (40000 INTERNATIONAL UNITS THOUSANDS)
  4. NANDROLONE [Suspect]
     Active Substance: NANDROLONE
     Indication: MUSCLE BUILDING THERAPY
  5. GONASE (CHORIONIC GONADOTROPHIN) [Suspect]
     Active Substance: GONADOTROPHIN, CHORIONIC
     Indication: MUSCLE BUILDING THERAPY
     Route: 030
  6. TESTOVIRON                         /00103102/ [Suspect]
     Active Substance: TESTOSTERONE PROPIONATE
     Indication: MUSCLE BUILDING THERAPY
  7. TESTOVIS                           /00069201/ [Suspect]
     Active Substance: METHYLTESTOSTERONE
     Indication: MUSCLE BUILDING THERAPY
     Route: 030
  8. TRENBOLONE [Suspect]
     Active Substance: TRENBOLONE
     Indication: MUSCLE BUILDING THERAPY
     Route: 030

REACTIONS (2)
  - Intracranial pressure increased [Recovered/Resolved]
  - Drug abuse [Unknown]
